FAERS Safety Report 7388016-7 (Version None)
Quarter: 2011Q2

REPORT INFORMATION
  Report Type: 
  Country: None (occurrence: None)
  Receive Date: 20110401
  Receipt Date: 20110322
  Transmission Date: 20111010
  Serious: Yes (Other)
  Sender: FDA-Public Use
  Company Number: CO-AMGEN-US434534

PATIENT
  Age: 70 Year
  Sex: Female

DRUGS (8)
  1. TIROXINA [Concomitant]
     Dosage: UNK
  2. ENBREL [Suspect]
     Indication: RHEUMATOID ARTHRITIS
     Dosage: 50 MG, QWK
     Route: 058
     Dates: start: 20090101
  3. FOLIC ACID [Concomitant]
  4. VERAPAMIL [Concomitant]
     Dosage: UNK
  5. ALPRAZOLAM [Concomitant]
     Dosage: UNK
  6. CALCIUM [Concomitant]
     Dosage: UNK
  7. ERGOCALCIFEROL [Concomitant]
  8. VITAMIN D [Concomitant]
     Dosage: UNK

REACTIONS (1)
  - THYROIDITIS [None]
